FAERS Safety Report 9349784 (Version 2)
Quarter: 2013Q4

REPORT INFORMATION
  Report Type: Report from Study
  Country: JP (occurrence: JP)
  Receive Date: 20130614
  Receipt Date: 20131122
  Transmission Date: 20140711
  Serious: Yes (Death, Other)
  Sender: FDA-Public Use
  Company Number: JP-B.I. PHARMACEUTICALS,INC./RIDGEFIELD-2013-BI-16769NB

PATIENT
  Age: 57 Year
  Sex: Male
  Weight: 77.7 kg

DRUGS (3)
  1. PRAZAXA [Suspect]
     Indication: CEREBROVASCULAR ACCIDENT PROPHYLAXIS
     Dosage: 220 MG
     Route: 048
     Dates: start: 20121219, end: 20130129
  2. PRAZAXA [Suspect]
     Indication: ATRIAL FIBRILLATION
  3. PRAZAXA [Suspect]
     Indication: THROMBOSIS PROPHYLAXIS

REACTIONS (1)
  - Lung neoplasm malignant [Fatal]
